FAERS Safety Report 25241748 (Version 1)
Quarter: 2025Q2

REPORT INFORMATION
  Report Type: Spontaneous
  Country: JP (occurrence: JP)
  Receive Date: 20250426
  Receipt Date: 20250426
  Transmission Date: 20250717
  Serious: Yes (Other)
  Sender: MERCK SHARP & DOHME LLC
  Company Number: JP-009507513-2279879

PATIENT
  Age: 52 Year
  Sex: Female

DRUGS (1)
  1. KEYTRUDA [Suspect]
     Active Substance: PEMBROLIZUMAB
     Indication: Triple negative breast cancer
     Dosage: 200 MG ONCE EVERY 3 WEEKS, 2 COURSES
     Route: 041
     Dates: start: 20250324

REACTIONS (1)
  - Immune-mediated scleritis [Not Recovered/Not Resolved]

NARRATIVE: CASE EVENT DATE: 20250421
